FAERS Safety Report 6130760-3 (Version None)
Quarter: 2009Q1

REPORT INFORMATION
  Report Type: 
  Country: None (occurrence: None)
  Receive Date: 20090323
  Receipt Date: 20090311
  Transmission Date: 20090719
  Serious: Yes (Other)
  Sender: FDA-Public Use
  Company Number: CHPA2009US06909

PATIENT
  Age: 67 Year
  Sex: Male

DRUGS (1)
  1. MAALOX ANTIACID/ANTIGAS MAX STR MULTI SYMPTON (NCH) (MAGNESIUM HDROXID [Suspect]
     Indication: ABDOMINAL DISCOMFORT
     Dosage: 6 TSP, QHS, ORAL
     Route: 048
     Dates: start: 20090201

REACTIONS (3)
  - AGEUSIA [None]
  - ANOREXIA [None]
  - INCORRECT DOSE ADMINISTERED [None]
